FAERS Safety Report 10944143 (Version 2)
Quarter: 2015Q2

REPORT INFORMATION
  Report Type: Spontaneous
  Country: JP (occurrence: JP)
  Receive Date: 20150323
  Receipt Date: 20150409
  Transmission Date: 20150821
  Serious: Yes (Other)
  Sender: FDA-Public Use
  Company Number: JP-ACCORD-029410

PATIENT
  Age: 65 Year
  Sex: Male
  Weight: 60 kg

DRUGS (2)
  1. GIMERACIL\OTERACIL\TEGAFUR [Suspect]
     Active Substance: GIMERACIL\OTERACIL\TEGAFUR
     Indication: SQUAMOUS CELL CARCINOMA
     Dosage: DAY1 - 14 AND DAY29 - 42
     Route: 048
  2. MITOMYCIN. [Suspect]
     Active Substance: MITOMYCIN
     Indication: SQUAMOUS CELL CARCINOMA
     Dosage: ON DAY 1 AND 29
     Route: 042

REACTIONS (6)
  - Decreased appetite [Unknown]
  - Radiation skin injury [None]
  - Leukopenia [Unknown]
  - Diarrhoea [Unknown]
  - Leukaemia [None]
  - Dermatitis [Unknown]
